FAERS Safety Report 7561776-8 (Version None)
Quarter: 2011Q2

REPORT INFORMATION
  Report Type: 
  Country: None (occurrence: None)
  Receive Date: 20110621
  Receipt Date: 20110616
  Transmission Date: 20111010
  Serious: Yes (Other)
  Sender: FDA-Public Use
  Company Number: CA-PFIZER INC-2011073869

PATIENT
  Age: 26 Year
  Sex: Male
  Weight: 99.773 kg

DRUGS (7)
  1. ZIPRASIDONE HYDROCHLORIDE [Suspect]
     Dosage: 80 MG, UNK
     Dates: start: 20100101
  2. ZIPRASIDONE HYDROCHLORIDE [Suspect]
     Dosage: 60 MG, UNK
  3. FLUCONAZOLE [Suspect]
  4. FISH OIL [Concomitant]
     Dosage: UNK
  5. VEGA [Concomitant]
     Dosage: UNK
  6. OLANZAPINE [Concomitant]
     Dosage: UNK
  7. ZOPICLONE [Concomitant]
     Indication: SLEEP DISORDER
     Dosage: UNK

REACTIONS (7)
  - BURNING SENSATION [None]
  - MENTAL IMPAIRMENT [None]
  - ORAL FUNGAL INFECTION [None]
  - GLOSSODYNIA [None]
  - ELECTRIC SHOCK [None]
  - TONGUE DISCOLOURATION [None]
  - VISION BLURRED [None]
